FAERS Safety Report 5670354-7 (Version None)
Quarter: 2008Q1

REPORT INFORMATION
  Report Type: 
  Country: None (occurrence: None)
  Receive Date: 20080314
  Receipt Date: 20080314
  Transmission Date: 20080703
  Serious: Yes (Death, Life-Threatening)
  Sender: FDA-Public Use
  Company Number: None

PATIENT
  Age: 69 Year
  Sex: Male

DRUGS (3)
  1. FLUOROURACIL [Suspect]
     Indication: PANCREATIC CARCINOMA METASTATIC
     Dosage: ONE OF 425 MG/M2 Q4W INTRAVENOUS NOS
     Route: 042
     Dates: start: 20080225, end: 20080229
  2. MORPHINE SULFATE [Concomitant]
  3. COMPAZINE (PROCHLORPERAZINE EDISYLATE) [Concomitant]

REACTIONS (11)
  - APNOEA [None]
  - BLOOD PRESSURE DECREASED [None]
  - CARDIO-RESPIRATORY ARREST [None]
  - ELECTROCARDIOGRAM ST SEGMENT DEPRESSION [None]
  - FALL [None]
  - GENERAL PHYSICAL HEALTH DETERIORATION [None]
  - PULMONARY EMBOLISM [None]
  - SHOCK [None]
  - SINUS TACHYCARDIA [None]
  - SKIN DISCOLOURATION [None]
  - URINARY TRACT INFECTION [None]
